FAERS Safety Report 4937584-0 (Version None)
Quarter: 2006Q1

REPORT INFORMATION
  Report Type: 
  Country: None (occurrence: None)
  Receive Date: 20060309
  Receipt Date: 20050706
  Transmission Date: 20060701
  Serious: Yes (Death)
  Sender: FDA-Public Use
  Company Number: US-MERCK-0507USA01014

PATIENT
  Age: 71 Year
  Sex: Male
  Weight: 111 kg

DRUGS (3)
  1. VIOXX [Suspect]
     Indication: ARTHRITIS
     Route: 048
     Dates: start: 20030301
  2. VIOXX [Suspect]
     Indication: KNEE OPERATION
     Route: 048
     Dates: start: 20030301
  3. LASIX [Concomitant]
     Indication: SWELLING
     Route: 065

REACTIONS (1)
  - MYOCARDIAL INFARCTION [None]
